FAERS Safety Report 18925899 (Version 3)
Quarter: 2021Q1

REPORT INFORMATION
  Report Type: Report from Study
  Country: DE (occurrence: DE)
  Receive Date: 20210222
  Receipt Date: 20210317
  Transmission Date: 20210420
  Serious: Yes (Congenital Anomaly)
  Sender: FDA-Public Use
  Company Number: DE-AUROBINDO-AUR-APL-2021-006592

PATIENT

DRUGS (1)
  1. LOSARTAN FILM?COATED TABLETS [Suspect]
     Active Substance: LOSARTAN
     Indication: HYPERTENSION
     Dosage: 50 MILLIGRAM (THROUGH PREGNANCY)
     Route: 064

REACTIONS (3)
  - Foetal exposure during pregnancy [Unknown]
  - Alport^s syndrome [Unknown]
  - Haematuria [Unknown]
